FAERS Safety Report 17755826 (Version 1)
Quarter: 2020Q2

REPORT INFORMATION
  Report Type: Spontaneous
  Country: US (occurrence: US)
  Receive Date: 20200506
  Receipt Date: 20200506
  Transmission Date: 20200714
  Serious: Yes (Hospitalization)
  Sender: FDA-Public Use
  Company Number: None

PATIENT
  Age: 74 Year
  Sex: Male

DRUGS (33)
  1. IRON UP [Concomitant]
  2. OXYCODONE AND ACETAMINOPHEN [Concomitant]
     Active Substance: ACETAMINOPHEN\OXYCODONE HYDROCHLORIDE
  3. CEPHALEXIN. [Concomitant]
     Active Substance: CEPHALEXIN
  4. COLLODION [Concomitant]
     Active Substance: COLLODION
  5. LEVOTHYROXIN [Concomitant]
     Active Substance: LEVOTHYROXINE
  6. VITAMIN D3 [Concomitant]
     Active Substance: CHOLECALCIFEROL
  7. ONDANSETRON [Concomitant]
     Active Substance: ONDANSETRON
  8. TRIAMCINOLON [Concomitant]
  9. ZORTRESS [Concomitant]
     Active Substance: EVEROLIMUS
  10. METOPROLOL. [Concomitant]
     Active Substance: METOPROLOL
  11. PREDNISOLONE. [Concomitant]
     Active Substance: PREDNISOLONE
  12. SODIUM BICAR [Concomitant]
  13. VITAMIN E [Concomitant]
     Active Substance: .ALPHA.-TOCOPHEROL
  14. ZOLPIDEM [Concomitant]
     Active Substance: ZOLPIDEM TARTRATE
  15. NORDITROPIN [Suspect]
     Active Substance: SOMATROPIN
     Dates: start: 20190410
  16. BD PEN [Concomitant]
  17. OMEPRAZOLE. [Concomitant]
     Active Substance: OMEPRAZOLE
  18. SERTRALINE [Concomitant]
     Active Substance: SERTRALINE HYDROCHLORIDE
  19. ACYCLOVIR. [Concomitant]
     Active Substance: ACYCLOVIR
  20. AMOXICILLIN. [Concomitant]
     Active Substance: AMOXICILLIN
  21. ATORVASTATIN [Concomitant]
     Active Substance: ATORVASTATIN
  22. CLINDAMYCIN. [Concomitant]
     Active Substance: CLINDAMYCIN
  23. FISH OIL [Concomitant]
     Active Substance: FISH OIL
  24. HYDROCO/APAP [Concomitant]
     Active Substance: ACETAMINOPHEN\HYDROCODONE
  25. LEVOFLOXACIN. [Concomitant]
     Active Substance: LEVOFLOXACIN
  26. CELLCEPT [Concomitant]
     Active Substance: MYCOPHENOLATE MOFETIL\MYCOPHENOLATE MOFETIL HYDROCHLORIDE
  27. MYCOPHENOLAT [Concomitant]
     Active Substance: MYCOPHENOLATE MOFETIL
  28. SOD SULFACET [Concomitant]
  29. TESTEROSTERONE [Concomitant]
  30. MILRINONE [Concomitant]
     Active Substance: MILRINONE
  31. SMZ/TMP [Concomitant]
     Active Substance: SULFAMETHOXAZOLE\TRIMETHOPRIM
  32. TACROLIMUS. [Concomitant]
     Active Substance: TACROLIMUS
  33. VITRON-C [Concomitant]
     Active Substance: ASCORBIC ACID\IRON

REACTIONS (1)
  - Therapy interrupted [None]

NARRATIVE: CASE EVENT DATE: 20200505
